FAERS Safety Report 5803414-8 (Version None)
Quarter: 2008Q3

REPORT INFORMATION
  Report Type: 
  Country: None (occurrence: None)
  Receive Date: 20080708
  Receipt Date: 20080701
  Transmission Date: 20090109
  Serious: Yes (Hospitalization)
  Sender: FDA-Public Use
  Company Number: FR-AVENTIS-200812505FR

PATIENT
  Age: 73 Year
  Sex: Female

DRUGS (14)
  1. FLAGYL [Suspect]
     Indication: SIGMOIDITIS
     Route: 048
     Dates: start: 20080505, end: 20080515
  2. AUGMENTIN '125' [Suspect]
     Indication: SIGMOIDITIS
     Route: 048
     Dates: start: 20080507, end: 20080515
  3. SPASFON                            /00934601/ [Suspect]
     Indication: SIGMOIDITIS
     Route: 048
     Dates: start: 20080507, end: 20080515
  4. METEOSPASMYL                       /01017401/ [Concomitant]
     Indication: SIGMOIDITIS
     Route: 048
     Dates: start: 20080505, end: 20080507
  5. FORLAX [Concomitant]
     Indication: CONSTIPATION
     Route: 048
     Dates: start: 20080505, end: 20080507
  6. KETOPROFEN [Concomitant]
     Route: 061
     Dates: start: 20080505, end: 20080507
  7. BEFIZAL [Concomitant]
     Route: 048
  8. VALSARTAN AND HYDROCHLOROTHIAZIDE [Concomitant]
     Route: 048
  9. DIAMICRON [Concomitant]
     Route: 048
  10. TANGANIL                           /00129601/ [Concomitant]
     Route: 048
  11. IMODIUM [Concomitant]
     Route: 048
  12. DAFALGAN                           /00020001/ [Concomitant]
     Route: 048
  13. NOCTRAN [Concomitant]
     Route: 048
  14. NIFUROXAZIDE [Concomitant]

REACTIONS (6)
  - ACUTE GENERALISED EXANTHEMATOUS PUSTULOSIS [None]
  - BLISTER [None]
  - ERYTHEMA [None]
  - HYPERTHERMIA [None]
  - LEUKOCYTOSIS [None]
  - RASH PUSTULAR [None]
